FAERS Safety Report 4703040-8 (Version None)
Quarter: 2005Q2

REPORT INFORMATION
  Report Type: 
  Country: None (occurrence: None)
  Receive Date: 20050628
  Receipt Date: 20050628
  Transmission Date: 20051028
  Serious: No
  Sender: FDA-Public Use
  Company Number: None

PATIENT

DRUGS (1)
  1. OXYCODONE HCL AND ACETAMINOPHEN [Suspect]
     Dosage: TAB

REACTIONS (2)
  - NAUSEA [None]
  - PRURITUS [None]
